FAERS Safety Report 19251808 (Version 2)
Quarter: 2021Q2

REPORT INFORMATION
  Report Type: Spontaneous
  Country: US (occurrence: US)
  Receive Date: 20210512
  Receipt Date: 20210528
  Transmission Date: 20210717
  Serious: Yes (Death, Hospitalization, Other)
  Sender: FDA-Public Use
  Company Number: US-009507513-2105USA002224

PATIENT
  Age: 79 Year
  Sex: Male
  Weight: 189.2 kg

DRUGS (16)
  1. CARBOPLATIN. [Suspect]
     Active Substance: CARBOPLATIN
     Indication: NON-SMALL CELL LUNG CANCER METASTATIC
     Dosage: UNK
     Dates: end: 20210503
  2. LUNESTA [Concomitant]
     Active Substance: ESZOPICLONE
  3. FOLIC ACID. [Concomitant]
     Active Substance: FOLIC ACID
  4. ACETYLSALICYLIC ACID [Concomitant]
     Active Substance: ASPIRIN
     Dosage: 81 MILLIGRAM
  5. ATORVASTATIN [Concomitant]
     Active Substance: ATORVASTATIN
  6. KEYTRUDA [Suspect]
     Active Substance: PEMBROLIZUMAB
     Dosage: UNK
     Dates: end: 20210503
  7. PROVENTIL [Concomitant]
     Active Substance: ALBUTEROL
     Dosage: UNK, PRN
  8. CYANOCOBALAMIN. [Concomitant]
     Active Substance: CYANOCOBALAMIN
  9. PRILOSEC [Concomitant]
     Active Substance: OMEPRAZOLE MAGNESIUM
  10. KEYTRUDA [Suspect]
     Active Substance: PEMBROLIZUMAB
     Indication: NON-SMALL CELL LUNG CANCER METASTATIC
     Dosage: 200 MG
     Dates: start: 20210429
  11. ALIMTA [Suspect]
     Active Substance: PEMETREXED DISODIUM
     Indication: NON-SMALL CELL LUNG CANCER METASTATIC
     Dosage: UNK
     Dates: end: 20210503
  12. COLECALCIFEROL [Concomitant]
     Active Substance: CHOLECALCIFEROL
  13. TRAMADOL HYDROCHLORIDE. [Concomitant]
     Active Substance: TRAMADOL HYDROCHLORIDE
  14. ELIQUIS [Concomitant]
     Active Substance: APIXABAN
  15. LEXAPRO [Concomitant]
     Active Substance: ESCITALOPRAM OXALATE
  16. CLARITIN [Concomitant]
     Active Substance: LORATADINE

REACTIONS (5)
  - Drug ineffective [Unknown]
  - Death [Fatal]
  - Pneumonia [Not Recovered/Not Resolved]
  - Fibrin D dimer increased [Not Recovered/Not Resolved]
  - Sepsis [Not Recovered/Not Resolved]

NARRATIVE: CASE EVENT DATE: 2021
